FAERS Safety Report 7921486-1 (Version None)
Quarter: 2011Q4

REPORT INFORMATION
  Report Type: 
  Country: None (occurrence: None)
  Receive Date: 20111117
  Receipt Date: 20111109
  Transmission Date: 20120403
  Serious: Yes (Hospitalization, Disabling, Other)
  Sender: FDA-Public Use
  Company Number: US-AMGEN-USASP2011056638

PATIENT
  Age: 59 Year
  Sex: Female

DRUGS (2)
  1. ENBREL [Suspect]
     Indication: PSORIATIC ARTHROPATHY
     Dosage: 50 MG, QWK
     Dates: start: 20030101
  2. ENBREL [Suspect]
     Indication: PSORIASIS

REACTIONS (10)
  - INTERVERTEBRAL DISC PROTRUSION [None]
  - ARTHRALGIA [None]
  - PSORIASIS [None]
  - INJECTION SITE SWELLING [None]
  - BACK PAIN [None]
  - JOINT SWELLING [None]
  - ABASIA [None]
  - GAIT DISTURBANCE [None]
  - GROIN PAIN [None]
  - INJECTION SITE PAIN [None]
